FAERS Safety Report 7897433-8 (Version None)
Quarter: 2011Q4

REPORT INFORMATION
  Report Type: 
  Country: None (occurrence: None)
  Receive Date: 20111028
  Receipt Date: 20110805
  Transmission Date: 20120403
  Serious: Yes (Hospitalization)
  Sender: FDA-Public Use
  Company Number: PHHY2011US55352

PATIENT
  Age: 5 Year
  Sex: Female

DRUGS (4)
  1. POLYETHYLENE GLYCOL [Concomitant]
  2. TRILEPTAL [Suspect]
  3. LAMICTAL [Suspect]
     Indication: EPILEPSY
     Dosage: 50 MG, UNK, ORAL
     Route: 048
     Dates: start: 20100701, end: 20110521
  4. LAMOTRIGINE [Suspect]
     Dosage: 100 MG, BID, ORAL
     Route: 048
     Dates: start: 20100101, end: 20110521

REACTIONS (2)
  - DRUG INEFFECTIVE [None]
  - CONVULSION [None]
